FAERS Safety Report 18980976 (Version 1)
Quarter: 2021Q1

REPORT INFORMATION
  Report Type: Spontaneous
  Country: US (occurrence: US)
  Receive Date: 20210307
  Receipt Date: 20210307
  Transmission Date: 20210420
  Serious: Yes (Other)
  Sender: FDA-Public Use
  Company Number: None

PATIENT
  Age: 15 Year
  Sex: Male
  Weight: 78.75 kg

DRUGS (1)
  1. STRENSIQ [Suspect]
     Active Substance: ASFOTASE ALFA
     Indication: HYPOPHOSPHATASIA
     Dosage: ?          OTHER FREQUENCY:6 TIMES A WEEK;?
     Route: 058

REACTIONS (2)
  - Lipodystrophy acquired [None]
  - Injection site reaction [None]

NARRATIVE: CASE EVENT DATE: 20180601
